FAERS Safety Report 22390189 (Version 5)
Quarter: 2024Q1

REPORT INFORMATION
  Report Type: Spontaneous
  Country: US (occurrence: US)
  Receive Date: 20230531
  Receipt Date: 20240312
  Transmission Date: 20240409
  Serious: Yes (Hospitalization, Other)
  Sender: FDA-Public Use
  Company Number: US-PFIZER INC-202300202529

PATIENT
  Age: 34 Year
  Sex: Male
  Weight: 56.2 kg

DRUGS (2)
  1. VOXELOTOR [Suspect]
     Active Substance: VOXELOTOR
     Indication: Sickle cell anaemia with crisis
     Dosage: 500MG/3 TABLETS BY MOUTH ONCE DAILY
     Route: 048
  2. VOXELOTOR [Suspect]
     Active Substance: VOXELOTOR
     Dosage: 500MG/3 TABLETS BY MOUTH ONCE DAILY
     Route: 048

REACTIONS (10)
  - Sickle cell anaemia with crisis [Not Recovered/Not Resolved]
  - Pain [Unknown]
  - Dyspnoea [Unknown]
  - Fatigue [Unknown]
  - Pulmonary function test decreased [Unknown]
  - COVID-19 [Unknown]
  - Back pain [Unknown]
  - Illness [Unknown]
  - Arthralgia [Unknown]
  - Intentional product misuse [Unknown]

NARRATIVE: CASE EVENT DATE: 20210501
